FAERS Safety Report 8555678-8 (Version None)
Quarter: 2012Q3

REPORT INFORMATION
  Report Type: 
  Country: None (occurrence: None)
  Receive Date: 20120801
  Receipt Date: 20120718
  Transmission Date: 20120928
  Serious: Yes (Other)
  Sender: FDA-Public Use
  Company Number: IT-MYLANLABS-2012S1014973

PATIENT
  Age: 61 Year
  Sex: Male

DRUGS (4)
  1. NADROPARIN CALCIUM [Interacting]
     Indication: DEEP VEIN THROMBOSIS
     Dosage: 5700 IU/DAY
     Route: 058
  2. LEVOFLOXACIN [Suspect]
     Indication: INFECTION
     Dosage: 500 MG/DAY
     Route: 048
  3. HYDROMORPHINE HYDROCHLORIDE [Interacting]
     Route: 048
  4. METFORMIN HCL [Interacting]
     Indication: TYPE 2 DIABETES MELLITUS
     Dosage: GLIBENCLAMIDE 2.5MG/METFORMIN 400MG TWICE/DAY
     Route: 048

REACTIONS (2)
  - HYPOGLYCAEMIA [None]
  - DRUG INTERACTION [None]
